FAERS Safety Report 6239994-0 (Version None)
Quarter: 2009Q2

REPORT INFORMATION
  Report Type: 
  Country: None (occurrence: None)
  Receive Date: 20090623
  Receipt Date: 20090611
  Transmission Date: 20091009
  Serious: Yes (Hospitalization, Other)
  Sender: FDA-Public Use
  Company Number: BE-BAYER-200915354GPV

PATIENT
  Age: 74 Year
  Sex: Male
  Weight: 69 kg

DRUGS (7)
  1. AVELOX [Suspect]
     Indication: LUNG INFECTION
     Dosage: TOTAL DAILY DOSE: 400 MG  UNIT DOSE: 400 MG
     Route: 048
     Dates: start: 20080101, end: 20080220
  2. AVELOX [Suspect]
     Dosage: TOTAL DAILY DOSE: 400 MG  UNIT DOSE: 400 MG
     Route: 042
     Dates: end: 20080220
  3. PERINDOPRIL ERBUMINE [Concomitant]
     Indication: HYPERTENSION
  4. EUGLUCON [Concomitant]
     Indication: DIABETES MELLITUS
  5. GLUCOPHAGE [Concomitant]
     Indication: DIABETES MELLITUS
  6. L-THYROXINE 75 [Concomitant]
     Indication: HYPOTHYROIDISM
  7. TREMBLEX 1/4 CO [Concomitant]
     Indication: DRUG USE FOR UNKNOWN INDICATION

REACTIONS (7)
  - ANURIA [None]
  - HYPERKALAEMIA [None]
  - HYPOGLYCAEMIA [None]
  - NORMOCHROMIC NORMOCYTIC ANAEMIA [None]
  - RENAL FAILURE ACUTE [None]
  - RENAL TUBULAR NECROSIS [None]
  - TUBULOINTERSTITIAL NEPHRITIS [None]
